FAERS Safety Report 21470460 (Version 2)
Quarter: 2022Q4

REPORT INFORMATION
  Report Type: Report from Study
  Country: US (occurrence: US)
  Receive Date: 20221018
  Receipt Date: 20221129
  Transmission Date: 20230112
  Serious: Yes (Other)
  Sender: FDA-Public Use
  Company Number: US-ABBVIE-4139839

PATIENT
  Sex: Female

DRUGS (3)
  1. VENCLEXTA [Suspect]
     Active Substance: VENETOCLAX
     Indication: Plasma cell myeloma
     Dosage: THERAPY DISCONTINUED IN SEP 2022
     Route: 048
     Dates: start: 20220916
  2. VENCLEXTA [Suspect]
     Active Substance: VENETOCLAX
     Indication: Plasma cell myeloma
     Dosage: THERAPY DISCONTINUED IN SEP 2022
     Route: 048
     Dates: start: 202209
  3. VENCLEXTA [Suspect]
     Active Substance: VENETOCLAX
     Indication: Plasma cell myeloma
     Dosage: THERAPY START IN 2022
     Route: 048

REACTIONS (8)
  - Thoracic vertebral fracture [Unknown]
  - Back pain [Unknown]
  - Abdominal pain upper [Unknown]
  - Feeling abnormal [Unknown]
  - Blood sodium decreased [Unknown]
  - Back disorder [Unknown]
  - Off label use [Unknown]
  - Abdominal distension [Unknown]
